FAERS Safety Report 20736834 (Version 1)
Quarter: 2022Q2

REPORT INFORMATION
  Report Type: Spontaneous
  Country: US (occurrence: US)
  Receive Date: 20220421
  Receipt Date: 20220421
  Transmission Date: 20220721
  Serious: No
  Sender: FDA-Public Use
  Company Number: US-PFIZER INC-202101057419

PATIENT
  Age: 57 Year
  Sex: Male
  Weight: 85.73 kg

DRUGS (1)
  1. CHANTIX [Suspect]
     Active Substance: VARENICLINE TARTRATE
     Indication: Smoking cessation therapy
     Dosage: 0.5 MG, 2X/DAY (0.5, AS PRESCRIBED, 1 TABLET BY MOUTH IN THE MORNING AND 1 TABLET BY MOUTH AT NIGHT)
     Route: 048
     Dates: start: 2021

REACTIONS (2)
  - Illness [Not Recovered/Not Resolved]
  - Ageusia [Not Recovered/Not Resolved]

NARRATIVE: CASE EVENT DATE: 20210101
